FAERS Safety Report 23067994 (Version 2)
Quarter: 2023Q4

REPORT INFORMATION
  Report Type: Spontaneous
  Country: GB (occurrence: GB)
  Receive Date: 20231016
  Receipt Date: 20231025
  Transmission Date: 20240110
  Serious: Yes (Life-Threatening, Hospitalization, Other)
  Sender: FDA-Public Use
  Company Number: GB-ALKEM LABORATORIES LIMITED-GB-ALKEM-2023-12184

PATIENT
  Age: 5 Decade
  Sex: Male

DRUGS (2)
  1. MORPHINE SULFATE [Suspect]
     Active Substance: MORPHINE SULFATE
     Indication: Breakthrough pain
     Dosage: UNK (60 EMPTY PACKS OF MODIFIED RELEASE)
     Route: 048
  2. MORPHINE SULFATE [Suspect]
     Active Substance: MORPHINE SULFATE
     Dosage: UNK (TWO EMPTY BOTTLES OF 10MG/5ML MORPHINE SOLUTION (200ML IN TOTAL).
     Route: 048

REACTIONS (9)
  - Toxic leukoencephalopathy [Recovering/Resolving]
  - Acute kidney injury [Unknown]
  - Brain injury [Recovering/Resolving]
  - Hepatotoxicity [Unknown]
  - Suicide attempt [Unknown]
  - Respiratory depression [Recovered/Resolved]
  - Toxicity to various agents [Unknown]
  - Intentional overdose [Unknown]
  - Coma scale abnormal [Recovered/Resolved]
